FAERS Safety Report 24627867 (Version 2)
Quarter: 2025Q1

REPORT INFORMATION
  Report Type: Spontaneous
  Country: ES (occurrence: ES)
  Receive Date: 20241117
  Receipt Date: 20250212
  Transmission Date: 20250409
  Serious: Yes (Hospitalization, Other)
  Sender: ALEXION PHARMACEUTICALS
  Company Number: ES-ASTRAZENECA-202410GLO027246ES

PATIENT
  Age: 78 Year

DRUGS (24)
  1. OMEPRAZOLE [Suspect]
     Active Substance: OMEPRAZOLE
     Dosage: 20 MILLIGRAM, QD
  2. PREDNISONE [Suspect]
     Active Substance: PREDNISONE
     Dosage: 30 MILLIGRAM, QD
  3. METHYLPREDNISOLONE [Suspect]
     Active Substance: METHYLPREDNISOLONE
  4. METFORMIN [Suspect]
     Active Substance: METFORMIN HYDROCHLORIDE
  5. CHLORTHALIDONE [Suspect]
     Active Substance: CHLORTHALIDONE
     Route: 065
  6. ACETAZOLAMIDE [Suspect]
     Active Substance: ACETAZOLAMIDE
     Route: 065
  7. SPIRONOLACTONE [Suspect]
     Active Substance: SPIRONOLACTONE
     Route: 065
  8. RIVAROXABAN [Suspect]
     Active Substance: RIVAROXABAN
     Route: 065
  9. FUROSEMIDE [Suspect]
     Active Substance: FUROSEMIDE
     Route: 065
  10. SACUBITRIL [Suspect]
     Active Substance: SACUBITRIL
     Route: 065
  11. VALSARTAN [Suspect]
     Active Substance: VALSARTAN
     Route: 065
  12. BISOPROLOL [Suspect]
     Active Substance: BISOPROLOL
     Route: 065
  13. DAPAGLIFLOZIN [Suspect]
     Active Substance: DAPAGLIFLOZIN
     Route: 065
  14. INSULIN DEGLUDEC [Suspect]
     Active Substance: INSULIN DEGLUDEC
     Route: 065
  15. SEMAGLUTIDE [Suspect]
     Active Substance: SEMAGLUTIDE
     Route: 065
  16. ROSUVASTATIN [Suspect]
     Active Substance: ROSUVASTATIN
     Route: 065
  17. FEBUXOSTAT [Suspect]
     Active Substance: FEBUXOSTAT
     Route: 065
  18. GABAPENTIN [Suspect]
     Active Substance: GABAPENTIN
     Route: 065
  19. MEBEVERINE [Suspect]
     Active Substance: MEBEVERINE
     Route: 065
  20. TRAZODONE [Suspect]
     Active Substance: TRAZODONE HYDROCHLORIDE
     Route: 065
  21. ARCAPTA NEOHALER [Suspect]
     Active Substance: INDACATEROL MALEATE
     Route: 065
  22. GLYCOPYRROLATE [Suspect]
     Active Substance: GLYCOPYRROLATE
     Route: 065
  23. LEVOTHYROXINE [Suspect]
     Active Substance: LEVOTHYROXINE
     Route: 065
  24. DETROL [Suspect]
     Active Substance: TOLTERODINE TARTRATE
     Route: 065

REACTIONS (3)
  - Cardiac failure [Recovered/Resolved]
  - Condition aggravated [Recovered/Resolved]
  - Renal impairment [Unknown]
